FAERS Safety Report 9790169 (Version 1)
Quarter: 2013Q4

REPORT INFORMATION
  Report Type: Spontaneous
  Country: FR (occurrence: FR)
  Receive Date: 20131231
  Receipt Date: 20131231
  Transmission Date: 20140711
  Serious: Yes (Hospitalization)
  Sender: FDA-Public Use
  Company Number: FR-JNJFOC-20131215940

PATIENT
  Age: 30 Year
  Sex: Female

DRUGS (1)
  1. ETHINYLESTRADIOL [Suspect]
     Indication: CONTRACEPTION
     Route: 048
     Dates: end: 20120530

REACTIONS (1)
  - Cerebral venous thrombosis [Not Recovered/Not Resolved]
